FAERS Safety Report 6909650-1 (Version None)
Quarter: 2010Q3

REPORT INFORMATION
  Report Type: 
  Country: None (occurrence: None)
  Receive Date: 20100805
  Receipt Date: 20100727
  Transmission Date: 20110219
  Serious: Yes (Hospitalization)
  Sender: FDA-Public Use
  Company Number: US-ABBOTT-10P-163-0660156-00

PATIENT
  Sex: Male
  Weight: 106.69 kg

DRUGS (12)
  1. NIASPAN [Suspect]
     Indication: HYPERLIPIDAEMIA
     Dates: start: 20100401
  2. NIASPAN [Suspect]
  3. ALBUTEROL [Concomitant]
     Indication: CHRONIC OBSTRUCTIVE PULMONARY DISEASE
  4. CITALOPRAM [Concomitant]
     Indication: DEPRESSION
  5. FUROSEMIDE [Concomitant]
     Indication: FLUID RETENTION
  6. GLIMEPIRIDE [Concomitant]
     Indication: DIABETES MELLITUS
  7. HYDROCODONE [Concomitant]
     Indication: PAIN
  8. LISINOPRIL [Concomitant]
     Indication: HYPERTENSION
  9. METFORMIN HCL [Concomitant]
     Indication: DIABETES MELLITUS
  10. METOPROLOL [Concomitant]
     Indication: HYPERTENSION
  11. PROAIR HFA [Concomitant]
     Indication: CHRONIC OBSTRUCTIVE PULMONARY DISEASE
  12. SIMVASTATIN [Concomitant]
     Indication: BLOOD CHOLESTEROL INCREASED

REACTIONS (4)
  - CEREBROVASCULAR ACCIDENT [None]
  - MUSCULOSKELETAL STIFFNESS [None]
  - PRURITUS [None]
  - RASH [None]
